FAERS Safety Report 7197853-3 (Version None)
Quarter: 2010Q4

REPORT INFORMATION
  Report Type: 
  Country: None (occurrence: None)
  Receive Date: 20101227
  Receipt Date: 20101222
  Transmission Date: 20110411
  Serious: Yes (Death)
  Sender: FDA-Public Use
  Company Number: US-SANOFI-AVENTIS-2010SA077528

PATIENT
  Age: 49 Year
  Sex: Female
  Weight: 77.1 kg

DRUGS (16)
  1. CLOPIDOGREL BISULFATE [Suspect]
     Indication: ACUTE CORONARY SYNDROME
     Route: 048
     Dates: start: 20100831, end: 20101204
  2. ASPIRIN [Concomitant]
     Dates: start: 20100825
  3. HUMALOG [Concomitant]
  4. FENOFIBRATE [Concomitant]
  5. LOVASTATIN [Concomitant]
  6. LYRICA [Concomitant]
  7. METHYLPREDNISOLONE [Concomitant]
  8. IMDUR [Concomitant]
  9. BENAZEPRIL [Concomitant]
  10. NORCO [Concomitant]
  11. AMBIEN [Concomitant]
  12. AMITRIPTYLINE [Concomitant]
  13. SERTRALINE HYDROCHLORIDE [Concomitant]
  14. BECLOMETHASONE DIPROPIONATE [Concomitant]
  15. CARVEDILOL [Concomitant]
     Dates: start: 20100828
  16. GEMFIBROZIL [Concomitant]
     Dates: start: 20100828

REACTIONS (1)
  - DEATH [None]
